FAERS Safety Report 16783177 (Version 2)
Quarter: 2019Q3

REPORT INFORMATION
  Report Type: Spontaneous
  Country: DE (occurrence: DE)
  Receive Date: 20190907
  Receipt Date: 20190917
  Transmission Date: 20191005
  Serious: Yes (Hospitalization, Other)
  Sender: FDA-Public Use
  Company Number: DE-AUROBINDO-AUR-APL-2019-058370

PATIENT

DRUGS (3)
  1. APIXABAN [Suspect]
     Active Substance: APIXABAN
     Indication: CEREBROVASCULAR ACCIDENT PROPHYLAXIS
     Dosage: 5 MILLIGRAM, ONCE A DAY (2.5 MILLIGRAM, BID)
     Route: 065
     Dates: start: 201712
  2. MEROPENEM. [Suspect]
     Active Substance: MEROPENEM
     Indication: INFLAMMATORY MARKER INCREASED
     Dosage: UNK
     Route: 065
  3. AMIODARONE [Concomitant]
     Active Substance: AMIODARONE
     Indication: ATRIAL FIBRILLATION
     Dosage: UNK
     Route: 065

REACTIONS (13)
  - Myopathy [Unknown]
  - Spinal osteoarthritis [Unknown]
  - Cardiac failure [Unknown]
  - Basal ganglia infarction [Unknown]
  - Vascular encephalopathy [Unknown]
  - Oedema peripheral [Unknown]
  - Dermatitis allergic [Unknown]
  - Infection [Unknown]
  - Hypoproteinaemia [Unknown]
  - Guillain-Barre syndrome [Unknown]
  - Ischaemic stroke [Recovering/Resolving]
  - Muscular weakness [Unknown]
  - Paraplegia [Unknown]

NARRATIVE: CASE EVENT DATE: 20190722
